FAERS Safety Report 9391147 (Version 2)
Quarter: 2013Q3

REPORT INFORMATION
  Report Type: Report from Study
  Country: DE (occurrence: DE)
  Receive Date: 20130709
  Receipt Date: 20130802
  Transmission Date: 20140515
  Serious: Yes (Other)
  Sender: FDA-Public Use
  Company Number: DE-ABBOTT-13P-062-1115421-00

PATIENT
  Age: 46 Year
  Sex: Male
  Weight: 74 kg

DRUGS (9)
  1. HUMIRA [Suspect]
     Indication: RHEUMATOID ARTHRITIS
     Route: 058
     Dates: start: 20130214
  2. METHOTREXATE [Concomitant]
     Indication: RHEUMATOID ARTHRITIS
     Dates: end: 201302
  3. METHOTREXATE [Concomitant]
     Dates: start: 201302, end: 201306
  4. NON STEROIDAL ANTIRHEUMATIC DRUG [Concomitant]
     Indication: RHEUMATOID ARTHRITIS
  5. PREDNISOLONE [Concomitant]
     Indication: RHEUMATOID ARTHRITIS
  6. MICTONORM [Concomitant]
     Indication: HYPERTONIC BLADDER
  7. METOCLOPRAMIDE [Concomitant]
     Indication: GASTROINTESTINAL DISORDER
  8. METOCLOPRAMIDE [Concomitant]
     Indication: PROPHYLAXIS
  9. IDEOS KT [Concomitant]
     Indication: OSTEOPOROSIS PROPHYLAXIS

REACTIONS (1)
  - Hyperlipidaemia [Not Recovered/Not Resolved]
